FAERS Safety Report 7687000-3 (Version None)
Quarter: 2011Q3

REPORT INFORMATION
  Report Type: 
  Country: None (occurrence: None)
  Receive Date: 20110816
  Receipt Date: 20110810
  Transmission Date: 20111222
  Serious: Yes (Hospitalization, Other)
  Sender: FDA-Public Use
  Company Number: US-ABBOTT-11P-163-0845858-00

PATIENT
  Age: 56 Year
  Sex: Male

DRUGS (3)
  1. LOVASTATIN [Concomitant]
     Indication: RENAL DISORDER
  2. LOVASTATIN [Concomitant]
     Indication: PROPHYLAXIS
     Dates: start: 20070101
  3. HUMIRA [Suspect]
     Indication: PSORIASIS
     Route: 058
     Dates: start: 20050101

REACTIONS (4)
  - DIABETES MELLITUS [None]
  - MYOCARDIAL INFARCTION [None]
  - CORONARY ARTERY OCCLUSION [None]
  - KNEE ARTHROPLASTY [None]
